FAERS Safety Report 4560084-7 (Version None)
Quarter: 2005Q1

REPORT INFORMATION
  Report Type: 
  Country: None (occurrence: None)
  Receive Date: 20050120
  Receipt Date: 20050120
  Transmission Date: 20050727
  Serious: Yes (Other)
  Sender: FDA-Public Use
  Company Number: None

PATIENT
  Age: 78 Year
  Sex: Male

DRUGS (6)
  1. OMEPRAZOLE [Suspect]
     Indication: GASTROOESOPHAGEAL REFLUX DISEASE
     Dosage: 20MG BY MOUTH DAILY
     Route: 048
     Dates: start: 20041228, end: 20050110
  2. ALTACE [Concomitant]
  3. COREG [Concomitant]
  4. FOLIC ACID [Concomitant]
  5. LIPITOR [Concomitant]
  6. FOLIC ACID [Concomitant]

REACTIONS (5)
  - DISEASE RECURRENCE [None]
  - DRUG INEFFECTIVE [None]
  - DYSPEPSIA [None]
  - GASTROOESOPHAGEAL REFLUX DISEASE [None]
  - PHARMACEUTICAL PRODUCT COMPLAINT [None]
